FAERS Safety Report 24147225 (Version 1)
Quarter: 2024Q3

REPORT INFORMATION
  Report Type: Spontaneous
  Country: US (occurrence: None)
  Receive Date: 20240726
  Receipt Date: 20240726
  Transmission Date: 20241016
  Serious: No
  Sender: Public
  Company Number: None

PATIENT
  Age: 60 Year
  Sex: Female
  Weight: 84.4 kg

DRUGS (9)
  1. VERZENIO [Suspect]
     Active Substance: ABEMACICLIB
     Indication: Breast cancer female
     Dosage: 150 MG TWICE A DAY ORAL ?
     Route: 048
     Dates: start: 20201201
  2. LOPERAMIDE [Concomitant]
     Active Substance: LOPERAMIDE
  3. FARXIGA [Concomitant]
     Active Substance: DAPAGLIFLOZIN PROPANEDIOL
  4. LISINOPRIL [Concomitant]
     Active Substance: LISINOPRIL
  5. metoprolol er 25mg [Concomitant]
  6. omperazole 20mg [Concomitant]
  7. spirinolactone 25mg [Concomitant]
  8. vitamin d 1000mcg [Concomitant]
  9. LETROZOLE [Concomitant]
     Active Substance: LETROZOLE

REACTIONS (3)
  - White blood cell count decreased [None]
  - Red blood cell count decreased [None]
  - Platelet count decreased [None]

NARRATIVE: CASE EVENT DATE: 20240716
